FAERS Safety Report 18296479 (Version 4)
Quarter: 2020Q4

REPORT INFORMATION
  Report Type: Spontaneous
  Country: JP (occurrence: JP)
  Receive Date: 20200922
  Receipt Date: 20201225
  Transmission Date: 20210113
  Serious: Yes (Hospitalization, Other)
  Sender: FDA-Public Use
  Company Number: JP-009507513-2009JPN007807

PATIENT
  Age: 82 Year
  Sex: Male
  Weight: 45 kg

DRUGS (4)
  1. BAYASPIRIN [Concomitant]
     Active Substance: ASPIRIN
     Indication: AORTIC VALVE STENOSIS
     Dosage: 100 MILLIGRAM, QD
     Route: 048
  2. FIDAXOMICIN [Suspect]
     Active Substance: FIDAXOMICIN
     Indication: PSEUDOMEMBRANOUS COLITIS
     Dosage: 200 MILLIGRAM, Q12H
     Route: 048
     Dates: start: 20200831, end: 20200909
  3. BISOPROLOL FUMARATE. [Concomitant]
     Active Substance: BISOPROLOL FUMARATE
     Indication: AORTIC VALVE STENOSIS
     Dosage: 2.5 MILLIGRAM, QD
     Route: 048
  4. NIFEDIPINE. [Concomitant]
     Active Substance: NIFEDIPINE
     Indication: AORTIC VALVE STENOSIS
     Dosage: 40 MILLIGRAM, QD
     Route: 048

REACTIONS (4)
  - Pyrexia [Recovered/Resolved]
  - Haematochezia [Recovered/Resolved]
  - Mucous stools [Recovered/Resolved]
  - Clostridium difficile infection [Recovered/Resolved]

NARRATIVE: CASE EVENT DATE: 20200913
